FAERS Safety Report 4608427-X (Version None)
Quarter: 2005Q1

REPORT INFORMATION
  Report Type: 
  Country: None (occurrence: None)
  Receive Date: 20050311
  Receipt Date: 20050311
  Transmission Date: 20050727
  Serious: Yes (Life-Threatening)
  Sender: FDA-Public Use
  Company Number: None

PATIENT
  Age: 62 Year
  Sex: Male
  Weight: 95.2554 kg

DRUGS (2)
  1. ELIDEL [Suspect]
     Indication: ROSACEA
     Dosage: THIN LAYER A/R (1,2/WK)    3 TO 4 YEARS USE
  2. ADVIL [Concomitant]

REACTIONS (1)
  - NON-HODGKIN'S LYMPHOMA [None]
